FAERS Safety Report 13930088 (Version 2)
Quarter: 2017Q3

REPORT INFORMATION
  Report Type: Report from Study
  Country: JP (occurrence: JP)
  Receive Date: 20170901
  Receipt Date: 20170913
  Transmission Date: 20171127
  Serious: Yes (Death)
  Sender: FDA-Public Use
  Company Number: JP-PFIZER INC-2017375776

PATIENT
  Age: 61 Year
  Sex: Male
  Weight: 58.5 kg

DRUGS (8)
  1. PHOSRIBBON [Concomitant]
     Indication: HYPOPHOSPHATAEMIA
     Dosage: UNK
     Dates: start: 20170817
  2. SUCRALFATE. [Concomitant]
     Active Substance: SUCRALFATE
     Indication: GASTRIC ULCER
     Dosage: UNK
     Dates: start: 20170802
  3. SUTENT [Suspect]
     Active Substance: SUNITINIB MALATE
     Indication: RENAL CELL CARCINOMA
     Dosage: 50 MG, 1X/DAY, CYCLIC 4 WEEKS ON AND 2 WEEKS OFF
     Route: 048
     Dates: start: 20170622, end: 20170718
  4. SANMEL [Concomitant]
     Indication: GASTRIC ULCER
     Dosage: UNK
     Dates: start: 20170802
  5. SPIRONOLACTONE. [Concomitant]
     Active Substance: SPIRONOLACTONE
     Indication: GASTRIC ULCER
     Dosage: UNK
     Dates: start: 20170814
  6. SENNOSIDE /00571901/ [Concomitant]
     Active Substance: SENNOSIDES A AND B
     Indication: CONSTIPATION
     Dosage: UNK
     Dates: start: 20170810
  7. TAKECAB [Concomitant]
     Active Substance: VONOPRAZAN FUMURATE
     Indication: GASTRIC ULCER
     Dosage: UNK
     Dates: start: 20170817
  8. MAGMITT [Concomitant]
     Active Substance: MAGNESIUM OXIDE
     Indication: CONSTIPATION
     Dosage: UNK
     Dates: start: 20170809

REACTIONS (1)
  - Neoplasm progression [Fatal]

NARRATIVE: CASE EVENT DATE: 20170826
